FAERS Safety Report 7937585-4 (Version None)
Quarter: 2011Q4

REPORT INFORMATION
  Report Type: 
  Country: None (occurrence: None)
  Receive Date: 20111123
  Receipt Date: 20111118
  Transmission Date: 20120403
  Serious: Yes (Other)
  Sender: FDA-Public Use
  Company Number: US-B.I. PHARMACEUTICALS,INC./RIDGEFIELD-2011-BP-26730BP

PATIENT
  Sex: Female

DRUGS (2)
  1. MEDICATION NOT FURTHER SPECIFIED [Concomitant]
  2. SPIRIVA [Suspect]

REACTIONS (1)
  - NEOPLASM MALIGNANT [None]
